FAERS Safety Report 11859505 (Version 1)
Quarter: 2015Q4

REPORT INFORMATION
  Report Type: Report from Study
  Country: NL (occurrence: NL)
  Receive Date: 20151221
  Receipt Date: 20151221
  Transmission Date: 20160305
  Serious: Yes (Hospitalization, Other)
  Sender: FDA-Public Use
  Company Number: NL-ABBVIE-15P-114-1520288-00

PATIENT
  Sex: Female

DRUGS (3)
  1. SYNAGIS [Suspect]
     Active Substance: PALIVIZUMAB
     Dosage: PER BODY WEIGHT
     Route: 030
     Dates: start: 20151116, end: 20151116
  2. SYNAGIS [Suspect]
     Active Substance: PALIVIZUMAB
     Dosage: PER BODY WEIGHT
     Route: 030
     Dates: start: 20151020, end: 20151020
  3. SYNAGIS [Suspect]
     Active Substance: PALIVIZUMAB
     Indication: HEART DISEASE CONGENITAL
     Dosage: PER BODY WEIGHT
     Route: 030
     Dates: start: 20150922, end: 20150922

REACTIONS (2)
  - Gastroenteritis [Not Recovered/Not Resolved]
  - Asthenia [Not Recovered/Not Resolved]
